FAERS Safety Report 10330257 (Version 1)
Quarter: 2014Q3

REPORT INFORMATION
  Report Type: Report from Study
  Country: BR (occurrence: BR)
  Receive Date: 20140721
  Receipt Date: 20140721
  Transmission Date: 20150326
  Serious: Yes (Death, Hospitalization, Other)
  Sender: FDA-Public Use
  Company Number: BR-ABBVIE-14K-020-1261925-00

PATIENT
  Age: 40 Year
  Sex: Female

DRUGS (4)
  1. HUMIRA [Suspect]
     Active Substance: ADALIMUMAB
     Indication: RHEUMATOID ARTHRITIS
     Route: 058
     Dates: end: 201312
  2. TECNOMET [Concomitant]
     Indication: PRODUCT USED FOR UNKNOWN INDICATION
  3. TRAMADOL [Concomitant]
     Active Substance: TRAMADOL
     Indication: PRODUCT USED FOR UNKNOWN INDICATION
  4. FOLIC ACID. [Concomitant]
     Active Substance: FOLIC ACID
     Indication: ANAEMIA

REACTIONS (8)
  - Death [Fatal]
  - Osteoarthritis [Not Recovered/Not Resolved]
  - Dyspnoea [Not Recovered/Not Resolved]
  - Cyanosis [Unknown]
  - Hypophagia [Not Recovered/Not Resolved]
  - Abasia [Not Recovered/Not Resolved]
  - Pain [Unknown]
  - Rheumatoid arthritis [Not Recovered/Not Resolved]

NARRATIVE: CASE EVENT DATE: 20131217
